FAERS Safety Report 14106593 (Version 3)
Quarter: 2018Q1

REPORT INFORMATION
  Report Type: Spontaneous
  Country: FR (occurrence: FR)
  Receive Date: 20171019
  Receipt Date: 20180207
  Transmission Date: 20180508
  Serious: Yes (Other)
  Sender: FDA-Public Use
  Company Number: FR-MERCK KGAA-2030652

PATIENT
  Age: 81 Year
  Sex: Female

DRUGS (9)
  1. ATORVASTATINE [Concomitant]
     Active Substance: ATORVASTATIN
  2. PERINDOPRIL [Concomitant]
     Active Substance: PERINDOPRIL
  3. DOLIPRANE [Concomitant]
     Active Substance: ACETAMINOPHEN
  4. TRINITRINE [Concomitant]
     Active Substance: NITROGLYCERIN
  5. HEMIGOXINE [Concomitant]
     Active Substance: DIGOXIN
  6. RIVAROXABAN [Concomitant]
     Active Substance: RIVAROXABAN
  7. LEVOTHYROX [Suspect]
     Active Substance: LEVOTHYROXINE
     Dates: start: 201609
  8. NOVOTHYROX [Suspect]
     Active Substance: LEVOTHYROXINE SODIUM
     Indication: THYROID DISORDER
  9. NEBILOX [Concomitant]
     Active Substance: NEBIVOLOL HYDROCHLORIDE

REACTIONS (18)
  - Cardiac disorder [Not Recovered/Not Resolved]
  - Impaired driving ability [Not Recovered/Not Resolved]
  - Neck pain [Not Recovered/Not Resolved]
  - Weight decreased [Not Recovered/Not Resolved]
  - Discomfort [None]
  - Myalgia [Not Recovered/Not Resolved]
  - Nausea [Not Recovered/Not Resolved]
  - Vertigo [Not Recovered/Not Resolved]
  - Hyperhidrosis [Not Recovered/Not Resolved]
  - Migraine [Not Recovered/Not Resolved]
  - Dizziness [Not Recovered/Not Resolved]
  - Fatigue [Not Recovered/Not Resolved]
  - Dysstasia [None]
  - Feeling abnormal [Not Recovered/Not Resolved]
  - Arrhythmia [Not Recovered/Not Resolved]
  - Diarrhoea [Not Recovered/Not Resolved]
  - Vision blurred [Not Recovered/Not Resolved]
  - Tremor [Not Recovered/Not Resolved]

NARRATIVE: CASE EVENT DATE: 201609
